FAERS Safety Report 15965179 (Version 2)
Quarter: 2019Q1

REPORT INFORMATION
  Report Type: Spontaneous
  Country: DE (occurrence: DE)
  Receive Date: 20190215
  Receipt Date: 20190302
  Transmission Date: 20190418
  Serious: Yes (Other)
  Sender: FDA-Public Use
  Company Number: DE-AUROBINDO-AUR-APL-2019-008223

PATIENT

DRUGS (18)
  1. MAXIM (DIENOGEST/ETHINYLESTRADIOL) [Suspect]
     Active Substance: DIENOGEST\ETHINYL ESTRADIOL
     Indication: PRODUCT USED FOR UNKNOWN INDICATION
     Dosage: START DATE:03-AUG-2016- SEVERAL YEARS BEFORE CHOLECYSTECTOMY
     Route: 048
     Dates: start: 20160803, end: 20170101
  2. VALETTE [Suspect]
     Active Substance: DIENOGEST\ETHINYL ESTRADIOL
     Indication: CONTRACEPTION
  3. METOPROLOL. [Concomitant]
     Active Substance: METOPROLOL
     Indication: HYPERTENSION
     Dosage: ^DOSED 0.5-0-0^
     Route: 065
  4. VITAMIN D [Concomitant]
     Active Substance: CHOLECALCIFEROL
     Indication: HYPOVITAMINOSIS
     Dosage: UNK, 1 DAY, DOSED AS NEEDED
     Route: 065
  5. ETHINYLESTRADIOL+DROSPIRENONE [Suspect]
     Active Substance: DROSPIRENONE\ETHINYL ESTRADIOL
     Indication: CONTRACEPTION
     Dosage: UNK
     Route: 065
     Dates: start: 20160801, end: 20160801
  6. FEMIGOA [Suspect]
     Active Substance: ETHINYL ESTRADIOL\LEVONORGESTREL
     Indication: OSTEOPENIA
     Dosage: UNK
     Route: 048
     Dates: end: 20000526
  7. MARVELON [Suspect]
     Active Substance: DESOGESTREL\ETHINYL ESTRADIOL
     Indication: CONTRACEPTION
     Dosage: UNK
     Route: 065
     Dates: end: 19951101
  8. MARVELON [Suspect]
     Active Substance: DESOGESTREL\ETHINYL ESTRADIOL
     Indication: BLOOD PROLACTIN ABNORMAL
  9. CYCLOSA [Suspect]
     Active Substance: DESOGESTREL\ETHINYL ESTRADIOL
     Indication: CONTRACEPTION
     Dosage: UNK
     Route: 048
     Dates: end: 19950201
  10. VALSARTAN. [Concomitant]
     Active Substance: VALSARTAN
     Indication: HYPOVITAMINOSIS
     Dosage: 160 MILLIGRAM, ONCE A DAY, DAILY DOSE: 160 MG MILLIGRAM(S) EVERY DAY
     Route: 065
  11. VALSARTAN. [Concomitant]
     Active Substance: VALSARTAN
     Indication: HYPERTENSION
  12. DIANE (CYPROTERONE ACETATE\ETHINYL ESTRADIOL) [Suspect]
     Active Substance: CYPROTERONE ACETATE\ETHINYL ESTRADIOL
     Indication: OSTEOPENIA
     Dosage: UNK
     Route: 048
     Dates: start: 19870822, end: 19930323
  13. DIANE (CYPROTERONE ACETATE\ETHINYL ESTRADIOL) [Suspect]
     Active Substance: CYPROTERONE ACETATE\ETHINYL ESTRADIOL
     Indication: CONTRACEPTION
  14. MARVELON [Suspect]
     Active Substance: DESOGESTREL\ETHINYL ESTRADIOL
     Indication: OSTEOPENIA
  15. MOREA SANOL [Suspect]
     Active Substance: CYPROTERONE ACETATE\ETHINYL ESTRADIOL
     Indication: ACNE
     Dosage: UNK
     Route: 065
  16. CYCLOSA [Suspect]
     Active Substance: DESOGESTREL\ETHINYL ESTRADIOL
     Indication: OSTEOPENIA
  17. FEMIGOA [Suspect]
     Active Substance: ETHINYL ESTRADIOL\LEVONORGESTREL
     Indication: CONTRACEPTION
  18. VALETTE [Suspect]
     Active Substance: DIENOGEST\ETHINYL ESTRADIOL
     Indication: OSTEOPENIA
     Dosage: UNK
     Route: 048
     Dates: end: 20010827

REACTIONS (4)
  - Product use in unapproved indication [Unknown]
  - Cholecystectomy [Unknown]
  - Focal nodular hyperplasia [Unknown]
  - Off label use [Unknown]

NARRATIVE: CASE EVENT DATE: 20110101
